FAERS Safety Report 5273637-8 (Version None)
Quarter: 2007Q1

REPORT INFORMATION
  Report Type: 
  Country: None (occurrence: None)
  Receive Date: 20070323
  Receipt Date: 20060725
  Transmission Date: 20070707
  Serious: No
  Sender: FDA-Public Use
  Company Number: US-GLAXOSMITHKLINE-A0611817A

PATIENT
  Age: 63 Year
  Sex: Female

DRUGS (1)
  1. LEUKERAN [Suspect]
     Dosage: 10MG PER DAY
     Route: 048
     Dates: start: 20060401, end: 20060703

REACTIONS (6)
  - FOLLICULITIS [None]
  - INFLAMMATION [None]
  - PRURITUS [None]
  - RASH PAPULAR [None]
  - STAPHYLOCOCCAL INFECTION [None]
  - URTICARIA [None]
